FAERS Safety Report 5730178-9 (Version None)
Quarter: 2008Q2

REPORT INFORMATION
  Report Type: 
  Country: None (occurrence: None)
  Receive Date: 20080502
  Receipt Date: 20080424
  Transmission Date: 20081010
  Serious: Yes (Other)
  Sender: FDA-Public Use
  Company Number: 8032190

PATIENT
  Sex: Male

DRUGS (4)
  1. KEPPRA [Suspect]
     Indication: CONVULSION
  2. KEPPRA [Suspect]
     Indication: HYPOXIC ENCEPHALOPATHY
  3. VALPROIC ACID [Suspect]
     Indication: CONVULSION
  4. VALPROIC ACID [Suspect]
     Indication: HYPOXIC ENCEPHALOPATHY

REACTIONS (2)
  - ABORTION SPONTANEOUS [None]
  - TRANSMISSION OF DRUG VIA SEMEN [None]
